FAERS Safety Report 5502325-5 (Version None)
Quarter: 2007Q4

REPORT INFORMATION
  Report Type: 
  Country: None (occurrence: None)
  Receive Date: 20071030
  Receipt Date: 20071029
  Transmission Date: 20080405
  Serious: No
  Sender: FDA-Public Use
  Company Number: US-SHR-US-2007-038534

PATIENT
  Sex: Female

DRUGS (1)
  1. YAZ [Suspect]
     Dosage: 1 TAB(S), 1X/DAY
     Route: 048
     Dates: start: 20070901

REACTIONS (2)
  - INAPPROPRIATE SCHEDULE OF DRUG ADMINISTRATION [None]
  - MENSTRUATION DELAYED [None]
